FAERS Safety Report 20948675 (Version 1)
Quarter: 2022Q2

REPORT INFORMATION
  Report Type: Spontaneous
  Country: US (occurrence: None)
  Receive Date: 20220612
  Receipt Date: 20220612
  Transmission Date: 20220721
  Serious: No
  Sender: FDA-Public Use
  Company Number: 2022A206678

PATIENT
  Age: 769 Month
  Sex: Male
  Weight: 90.7 kg

DRUGS (2)
  1. BYDUREON BCISE [Suspect]
     Active Substance: EXENATIDE
     Indication: Type 2 diabetes mellitus
     Route: 058
  2. HUMALIN R [Concomitant]

REACTIONS (4)
  - Blood glucose fluctuation [Recovered/Resolved]
  - Intentional device misuse [Recovered/Resolved]
  - Drug dose omission by device [Not Recovered/Not Resolved]
  - Device delivery system issue [Unknown]

NARRATIVE: CASE EVENT DATE: 20220501
